FAERS Safety Report 5752096-2 (Version None)
Quarter: 2008Q2

REPORT INFORMATION
  Report Type: 
  Country: None (occurrence: None)
  Receive Date: 20080529
  Receipt Date: 20080521
  Transmission Date: 20081010
  Serious: Yes (Death)
  Sender: FDA-Public Use
  Company Number: ES-TEVA-171868ISR

PATIENT
  Age: 82 Year
  Sex: Female

DRUGS (1)
  1. AZILECT [Suspect]
     Indication: TREMOR
     Route: 048
     Dates: start: 20071002, end: 20080406

REACTIONS (1)
  - CEREBRAL HAEMORRHAGE [None]
